FAERS Safety Report 9507006 (Version 1)
Quarter: 2013Q3

REPORT INFORMATION
  Report Type: Spontaneous
  Country: US (occurrence: US)
  Receive Date: 20130909
  Receipt Date: 20130909
  Transmission Date: 20140515
  Serious: No
  Sender: FDA-Public Use
  Company Number: US-B.I. PHARMACEUTICALS,INC./RIDGEFIELD-2013-BI-26753BP

PATIENT
  Age: 66 Year
  Sex: Female
  Weight: 98 kg

DRUGS (5)
  1. COMBIVENT [Suspect]
     Indication: EMPHYSEMA
     Dosage: 2 PUF
     Route: 055
     Dates: start: 201307, end: 201308
  2. PROAIR [Concomitant]
     Indication: EMPHYSEMA
     Dosage: (INHALATION AEROSOL)
     Route: 055
  3. SYMBICORT [Concomitant]
     Indication: EMPHYSEMA
     Dosage: DOSE PER APPLICATION: 160 MCG/4.5 MCG; DAILY DOSE: 320-640 MCG/9-18 MCG
     Route: 055
  4. ARMOUR THYROID [Concomitant]
     Indication: THYROID DISORDER
     Dosage: 60 MG
     Route: 048
  5. NIFEDIAC [Concomitant]
     Indication: HYPERTENSION
     Dosage: (TABLET) STRENGTH: 30 MG; DAILY DOSE: 60 MG
     Route: 048

REACTIONS (4)
  - Drug prescribing error [Recovered/Resolved]
  - Flushing [Recovered/Resolved]
  - Cardiac flutter [Recovered/Resolved]
  - Dizziness [Recovered/Resolved]
